FAERS Safety Report 8820751 (Version 1)
Quarter: 2012Q4

REPORT INFORMATION
  Report Type: 
  Country: IN (occurrence: IN)
  Receive Date: 20121002
  Receipt Date: 20121002
  Transmission Date: 20130627
  Serious: Yes (Death, Hospitalization)
  Sender: FDA-Public Use
  Company Number: IN-PFIZER INC-2011315719

PATIENT
  Age: 65 Year
  Sex: Male

DRUGS (1)
  1. SUTENT [Suspect]
     Indication: METASTATIC RENAL CELL CARCINOMA
     Dosage: 50 mg, 1x/day
     Route: 048
     Dates: start: 20111105, end: 2012

REACTIONS (10)
  - Disease progression [Fatal]
  - Metastatic renal cell carcinoma [Fatal]
  - Coma [Not Recovered/Not Resolved]
  - Fatigue [Recovered/Resolved]
  - Platelet count decreased [Recovered/Resolved]
  - White blood cell count decreased [Recovered/Resolved]
  - Jaundice [Recovered/Resolved]
  - Fatigue [Recovering/Resolving]
  - Yellow skin [Recovering/Resolving]
  - Ocular icterus [Recovering/Resolving]
